FAERS Safety Report 19361704 (Version 1)
Quarter: 2021Q2

REPORT INFORMATION
  Report Type: Spontaneous
  Country: US (occurrence: US)
  Receive Date: 20210603
  Receipt Date: 20210603
  Transmission Date: 20210717
  Serious: No
  Sender: FDA-Public Use
  Company Number: US-ROCHE-2786222

PATIENT
  Sex: Female

DRUGS (1)
  1. OCREVUS [Suspect]
     Active Substance: OCRELIZUMAB
     Indication: RELAPSING-REMITTING MULTIPLE SCLEROSIS
     Dosage: ANTICIPATED DATE OF TREATMENT = 15/MAY/2019
     Route: 042
     Dates: start: 20190501

REACTIONS (2)
  - No adverse event [Unknown]
  - Therapeutic product effect decreased [Unknown]
